FAERS Safety Report 5931894-6 (Version None)
Quarter: 2008Q4

REPORT INFORMATION
  Report Type: 
  Country: None (occurrence: None)
  Receive Date: 20081027
  Receipt Date: 20081016
  Transmission Date: 20090506
  Serious: Yes (Other)
  Sender: FDA-Public Use
  Company Number: US-PFIZER INC-2008087641

PATIENT
  Age: 21 Year
  Sex: Female

DRUGS (3)
  1. GEODON [Suspect]
     Indication: SCHIZOID PERSONALITY DISORDER
     Dosage: DAILY DOSE:120MG-TEXT:40 MG IN AM AND 80 MG IN PM
  2. LAMICTAL [Concomitant]
  3. EFFEXOR [Concomitant]

REACTIONS (2)
  - CYANOSIS [None]
  - OVERDOSE [None]
